FAERS Safety Report 5384925-9 (Version None)
Quarter: 2007Q3

REPORT INFORMATION
  Report Type: 
  Country: None (occurrence: None)
  Receive Date: 20070709
  Receipt Date: 20070625
  Transmission Date: 20080115
  Serious: Yes (Life-Threatening, Hospitalization, Other)
  Sender: FDA-Public Use
  Company Number: POMP-11058

PATIENT
  Age: 33 Week
  Sex: Male
  Weight: 5.9 kg

DRUGS (14)
  1. MYOZYME [Suspect]
     Indication: GLYCOGEN STORAGE DISEASE TYPE II
     Dosage: 10 MG/KG Q2WKS IV
     Route: 042
     Dates: start: 20070604
  2. MYOZYME [Suspect]
     Indication: GLYCOGEN STORAGE DISEASE TYPE II
     Dosage: 20 MG/KG Q2WKS IV
     Route: 042
     Dates: start: 20070224, end: 20070501
  3. DIGOXIN [Concomitant]
  4. POTASSIUM CHLORIDE [Concomitant]
  5. CALCIUM GLUBIONATE [Concomitant]
  6. PROCRIT [Concomitant]
  7. BENADRYL [Concomitant]
  8. TYLENOL [Concomitant]
  9. FERROUS SULFATE [Concomitant]
  10. ZINC OXIDE [Concomitant]
  11. LACTOBACILLUS [Concomitant]
  12. MCT OIL [Concomitant]
  13. NYSTATIN [Concomitant]
  14. ASPIRIN [Concomitant]

REACTIONS (13)
  - ALANINE AMINOTRANSFERASE INCREASED [None]
  - ASPARTATE AMINOTRANSFERASE INCREASED [None]
  - BRONCHIAL HYPERREACTIVITY [None]
  - CANDIDIASIS [None]
  - CENTRAL LINE INFECTION [None]
  - EOSINOPHILIA [None]
  - HYPOTENSION [None]
  - INFLUENZA [None]
  - RENAL FAILURE ACUTE [None]
  - RESPIRATORY SYNCYTIAL VIRUS INFECTION [None]
  - RESPIRATORY TRACT INFECTION [None]
  - STAPHYLOCOCCAL INFECTION [None]
  - THROMBOCYTOPENIA [None]
